FAERS Safety Report 7641591-7 (Version None)
Quarter: 2011Q3

REPORT INFORMATION
  Report Type: 
  Country: None (occurrence: None)
  Receive Date: 20110728
  Receipt Date: 20110723
  Transmission Date: 20111222
  Serious: Yes (Disabling)
  Sender: FDA-Public Use
  Company Number: JP-B.I. PHARMACEUTICALS,INC./RIDGEFIELD-2011-BP-14370NB

PATIENT
  Sex: Female

DRUGS (6)
  1. CRESTOR [Concomitant]
     Dosage: 2.5 NR
     Route: 048
     Dates: start: 20100306
  2. PRADAXA [Suspect]
     Indication: ATRIAL FIBRILLATION
     Dosage: 220 MG
     Route: 048
     Dates: start: 20110514, end: 20110517
  3. ISOSORBIDE DINITRATE [Concomitant]
     Dosage: 40 MG
     Route: 048
     Dates: start: 20100306
  4. DIGOXIN [Concomitant]
     Dosage: 0.125 NR
     Route: 048
     Dates: start: 20100306
  5. AMLODIN OD [Concomitant]
     Dosage: 2.5 NR
     Route: 048
     Dates: start: 20100306
  6. CIBENOL [Concomitant]
     Dosage: 100 MG
     Route: 048
     Dates: start: 20100306

REACTIONS (4)
  - OESOPHAGEAL DISCOMFORT [None]
  - DYSPHAGIA [None]
  - OESOPHAGEAL PAIN [None]
  - THROAT IRRITATION [None]
